FAERS Safety Report 7654609-2 (Version None)
Quarter: 2011Q3

REPORT INFORMATION
  Report Type: 
  Country: None (occurrence: None)
  Receive Date: 20110803
  Receipt Date: 20110725
  Transmission Date: 20111222
  Serious: Yes (Other)
  Sender: FDA-Public Use
  Company Number: GB-ASTRAZENECA-2011SE41230

PATIENT
  Age: 71 Year
  Sex: Female

DRUGS (1)
  1. SEROQUEL [Suspect]
     Indication: ANXIETY
     Route: 048

REACTIONS (8)
  - MALAISE [None]
  - DRUG PRESCRIBING ERROR [None]
  - FEELING ABNORMAL [None]
  - OFF LABEL USE [None]
  - NIGHTMARE [None]
  - CHEST DISCOMFORT [None]
  - SOMNOLENCE [None]
  - LOSS OF CONSCIOUSNESS [None]
